FAERS Safety Report 4640312-X (Version None)
Quarter: 2005Q2

REPORT INFORMATION
  Report Type: 
  Country: None (occurrence: None)
  Receive Date: 20050420
  Receipt Date: 20040810
  Transmission Date: 20051028
  Serious: No
  Sender: FDA-Public Use
  Company Number: US-GLAXOSMITHKLINE-A0521666A

PATIENT
  Age: 68 Year
  Sex: Female

DRUGS (1)
  1. ESKALITH [Suspect]
     Indication: DRUG USE FOR UNKNOWN INDICATION
     Dosage: 450MG TWICE PER DAY
     Route: 048

REACTIONS (1)
  - CREATININE RENAL CLEARANCE DECREASED [None]
